FAERS Safety Report 15627067 (Version 8)
Quarter: 2019Q4

REPORT INFORMATION
  Report Type: Spontaneous
  Country: US (occurrence: US)
  Receive Date: 20181116
  Receipt Date: 20191015
  Transmission Date: 20200122
  Serious: Yes (Other)
  Sender: FDA-Public Use
  Company Number: US-JNJFOC-20181118538

PATIENT
  Sex: Male

DRUGS (21)
  1. PANTOPRAZOLE [Concomitant]
     Active Substance: PANTOPRAZOLE
     Indication: GASTROOESOPHAGEAL REFLUX DISEASE
  2. METOPROLOL. [Concomitant]
     Active Substance: METOPROLOL
     Dosage: 50 MG, BID
  3. IMBRUVICA [Suspect]
     Active Substance: IBRUTINIB
     Indication: CHRONIC LYMPHOCYTIC LEUKAEMIA
     Route: 048
  4. IMBRUVICA [Suspect]
     Active Substance: IBRUTINIB
     Route: 048
  5. AMLODIPINE [Concomitant]
     Active Substance: AMLODIPINE BESYLATE
  6. METOPROLOL. [Concomitant]
     Active Substance: METOPROLOL
  7. MULTIVITAMINS [Concomitant]
     Active Substance: VITAMINS
  8. CENTRUM SILVER                     /02363801/ [Concomitant]
     Active Substance: MINERALS\VITAMINS
     Dosage: UNK, QD
  9. SERTRALINE [Concomitant]
     Active Substance: SERTRALINE HYDROCHLORIDE
  10. IMBRUVICA [Suspect]
     Active Substance: IBRUTINIB
     Route: 048
     Dates: start: 20190529, end: 20190529
  11. IMBRUVICA [Suspect]
     Active Substance: IBRUTINIB
     Route: 048
     Dates: start: 20180211
  12. PRAVASTATIN. [Concomitant]
     Active Substance: PRAVASTATIN
  13. FISH OIL [Concomitant]
     Active Substance: FISH OIL
  14. LOSARTAN / HIDROCLOROTIAZIDA [Concomitant]
     Active Substance: HYDROCHLOROTHIAZIDE\LOSARTAN
     Dosage: 10MG/12.5MG
  15. TYLENOL [Concomitant]
     Active Substance: ACETAMINOPHEN
  16. AMLODIPINE [Concomitant]
     Active Substance: AMLODIPINE BESYLATE
  17. LOSARTIN [Concomitant]
     Active Substance: LOSARTAN
  18. ZOLOFT [Concomitant]
     Active Substance: SERTRALINE HYDROCHLORIDE
  19. ASPIRIN                            /00002701/ [Concomitant]
     Active Substance: ASPIRIN
     Dosage: 81 MG, EVERY FRIDAY
  20. IMBRUVICA [Suspect]
     Active Substance: IBRUTINIB
     Indication: CHRONIC LYMPHOCYTIC LEUKAEMIA
     Route: 048
     Dates: start: 2018
  21. PRAVASTATIN. [Concomitant]
     Active Substance: PRAVASTATIN

REACTIONS (18)
  - Squamous cell carcinoma of skin [Unknown]
  - Vitreous floaters [Recovered/Resolved]
  - White blood cell count increased [Not Recovered/Not Resolved]
  - Epistaxis [Not Recovered/Not Resolved]
  - Blood blister [Recovered/Resolved]
  - Sinus disorder [Not Recovered/Not Resolved]
  - Red blood cell count decreased [Not Recovered/Not Resolved]
  - Renal disorder [Unknown]
  - Angina bullosa haemorrhagica [Not Recovered/Not Resolved]
  - Hypertension [Not Recovered/Not Resolved]
  - Cough [Not Recovered/Not Resolved]
  - Eye haemorrhage [Recovered/Resolved]
  - Blood creatinine increased [Not Recovered/Not Resolved]
  - Papilloedema [Recovered/Resolved]
  - Stomatitis [Recovered/Resolved]
  - Cataract [Unknown]
  - Sleep apnoea syndrome [Recovered/Resolved]
  - Diabetes mellitus [Recovering/Resolving]

NARRATIVE: CASE EVENT DATE: 2018
